FAERS Safety Report 7926958 (Version 3)
Quarter: 2014Q4

REPORT INFORMATION
  Report Type: Spontaneous
  Country: US (occurrence: US)
  Receive Date: 20110502
  Receipt Date: 20141128
  Transmission Date: 20150529
  Serious: Yes (Hospitalization)
  Sender: FDA-Public Use
  Company Number: US-ASTRAZENECA-2011SE02368

PATIENT
  Age: 74 Year
  Sex: Female

DRUGS (1)
  1. NEXIUM [Suspect]
     Active Substance: ESOMEPRAZOLE MAGNESIUM
     Route: 048

REACTIONS (6)
  - Intentional product misuse [Unknown]
  - Drug dose omission [Unknown]
  - Malaise [Unknown]
  - Abdominal distension [Unknown]
  - Blood potassium decreased [Unknown]
  - Feeding disorder [Unknown]
